FAERS Safety Report 11463889 (Version 1)
Quarter: 2015Q3

REPORT INFORMATION
  Report Type: Spontaneous
  Country: US (occurrence: US)
  Receive Date: 20150831
  Receipt Date: 20150831
  Transmission Date: 20151125
  Serious: No
  Sender: FDA-Public Use
  Company Number: US-ELI_LILLY_AND_COMPANY-US201105004055

PATIENT
  Age: 78 Year
  Sex: Female

DRUGS (3)
  1. CYMBALTA [Suspect]
     Active Substance: DULOXETINE HYDROCHLORIDE
     Indication: FIBROMYALGIA
     Dosage: 30 MG, QD
     Dates: start: 20110505, end: 20110507
  2. CORTICOSTEROIDS [Concomitant]
     Active Substance: CORTICOSTEROID NOS
     Indication: EAR PAIN
  3. CALCIUM [Concomitant]
     Active Substance: CALCIUM
     Dosage: UNK, PRN

REACTIONS (10)
  - Sensory disturbance [Recovered/Resolved]
  - Malaise [Unknown]
  - Feeling abnormal [Unknown]
  - Vertigo [Unknown]
  - Dizziness [Unknown]
  - Headache [Unknown]
  - Disturbance in attention [Unknown]
  - Chest pain [Unknown]
  - Palpitations [Unknown]
  - Hallucination, visual [Unknown]

NARRATIVE: CASE EVENT DATE: 20110507
